FAERS Safety Report 20595587 (Version 1)
Quarter: 2022Q1

REPORT INFORMATION
  Report Type: Spontaneous
  Country: JP (occurrence: JP)
  Receive Date: 20220315
  Receipt Date: 20220315
  Transmission Date: 20220423
  Serious: Yes (Other)
  Sender: FDA-Public Use
  Company Number: JP-NBI-J202204254BIPI

PATIENT
  Age: 8 Decade
  Sex: Male

DRUGS (5)
  1. OFEV [Suspect]
     Active Substance: NINTEDANIB
     Indication: Idiopathic pulmonary fibrosis
     Route: 048
     Dates: start: 202105
  2. JARDIANCE [Suspect]
     Active Substance: EMPAGLIFLOZIN
     Indication: Diabetes mellitus
     Route: 048
  3. MITIGLINIDE CALCIUM HYDRATE [Concomitant]
     Active Substance: MITIGLINIDE CALCIUM HYDRATE
     Indication: Diabetes mellitus
     Route: 048
  4. PREDNISOLONE [Concomitant]
     Active Substance: PREDNISOLONE
     Indication: Idiopathic pulmonary fibrosis
     Route: 048
     Dates: end: 20220205
  5. PREDNISOLONE [Concomitant]
     Active Substance: PREDNISOLONE
     Route: 048
     Dates: start: 20220206

REACTIONS (3)
  - Idiopathic pulmonary fibrosis [Recovered/Resolved]
  - Pyrexia [Recovered/Resolved]
  - COVID-19 [Unknown]

NARRATIVE: CASE EVENT DATE: 20220116
